FAERS Safety Report 22367566 (Version 2)
Quarter: 2023Q2

REPORT INFORMATION
  Report Type: Spontaneous
  Country: ES (occurrence: ES)
  Receive Date: 20230525
  Receipt Date: 20230604
  Transmission Date: 20230721
  Serious: Yes (Hospitalization)
  Sender: FDA-Public Use
  Company Number: ES-TEVA-2023-ES-2889780

PATIENT
  Age: 65 Year
  Sex: Female

DRUGS (5)
  1. VORICONAZOLE [Interacting]
     Active Substance: VORICONAZOLE
     Indication: Antifungal treatment
     Dosage: 12 MG/KG DAILY; A LOADING DOSE 6 MG/KG/12H
     Route: 042
     Dates: start: 20220421
  2. VORICONAZOLE [Interacting]
     Active Substance: VORICONAZOLE
     Dosage: 8 MG/KG DAILY; 4 MG/KG/12H
     Route: 042
     Dates: start: 202204
  3. VORICONAZOLE [Interacting]
     Active Substance: VORICONAZOLE
     Dosage: DOSE REDUCED
     Route: 042
     Dates: start: 202204
  4. VORICONAZOLE [Interacting]
     Active Substance: VORICONAZOLE
     Route: 048
     Dates: start: 202204
  5. NIRMATRELVIR\RITONAVIR [Interacting]
     Active Substance: NIRMATRELVIR\RITONAVIR
     Indication: COVID-19
     Route: 065
     Dates: start: 20220429

REACTIONS (4)
  - Alanine aminotransferase increased [Unknown]
  - Drug level increased [Recovered/Resolved]
  - Drug interaction [Unknown]
  - Off label use [Unknown]

NARRATIVE: CASE EVENT DATE: 20220429
